FAERS Safety Report 11798870 (Version 1)
Quarter: 2015Q4

REPORT INFORMATION
  Report Type: Report from Study
  Country: US (occurrence: US)
  Receive Date: 20151203
  Receipt Date: 20151203
  Transmission Date: 20160305
  Serious: No
  Sender: FDA-Public Use
  Company Number: US-AMGEN-USASL2015113133

PATIENT
  Age: 77 Year
  Sex: Female

DRUGS (3)
  1. REPATHA [Suspect]
     Active Substance: EVOLOCUMAB
     Indication: HYPERCHOLESTEROLAEMIA
     Dosage: UNK UNK, Q2WK
     Route: 065
     Dates: start: 201509
  2. LASIX [Concomitant]
     Active Substance: FUROSEMIDE
  3. POTASSIUM [Concomitant]
     Active Substance: POTASSIUM

REACTIONS (9)
  - Rhinorrhoea [Unknown]
  - Dyspnoea [Unknown]
  - Mobility decreased [Unknown]
  - Speech disorder [Unknown]
  - Fatigue [Unknown]
  - Asthenia [Unknown]
  - Back pain [Unknown]
  - Nervous system disorder [Unknown]
  - Intervertebral disc disorder [Unknown]

NARRATIVE: CASE EVENT DATE: 2015
